FAERS Safety Report 7380047-6 (Version None)
Quarter: 2011Q1

REPORT INFORMATION
  Report Type: 
  Country: None (occurrence: None)
  Receive Date: 20110329
  Receipt Date: 20110322
  Transmission Date: 20110831
  Serious: Yes (Death)
  Sender: FDA-Public Use
  Company Number: US-JNJFOC-20110204460

PATIENT
  Age: 58 Year
  Sex: Female

DRUGS (10)
  1. NALTREXONE [Concomitant]
  2. AVALIDE [Concomitant]
  3. EXFORGE [Concomitant]
  4. LOPRESSOR [Concomitant]
  5. AVAPRO [Concomitant]
  6. CYMBALTA [Concomitant]
  7. GEODON [Concomitant]
  8. STELARA [Suspect]
     Indication: PSORIASIS
     Route: 058
  9. KEPPRA [Concomitant]
  10. CLONOPIN [Concomitant]

REACTIONS (1)
  - CARDIAC ARREST [None]
